FAERS Safety Report 7861647-3 (Version None)
Quarter: 2011Q4

REPORT INFORMATION
  Report Type: 
  Country: None (occurrence: None)
  Receive Date: 20111027
  Receipt Date: 20111019
  Transmission Date: 20120403
  Serious: Yes (Life-Threatening, Hospitalization)
  Sender: FDA-Public Use
  Company Number: PHHY2011NL92679

PATIENT
  Sex: Male

DRUGS (3)
  1. METOPROLOL SUCCINATE SANDOZ [Suspect]
     Indication: HYPERTENSION
     Dosage: UNK
     Route: 048
     Dates: start: 20110331
  2. CHLOORTALIDON [Suspect]
     Indication: HYPERTENSION
     Route: 048
     Dates: start: 20060101, end: 20110903
  3. SIMVASTATIN [Suspect]
     Indication: HYPERTENSION
     Route: 048
     Dates: start: 20080101, end: 20110903

REACTIONS (1)
  - HYPOKALAEMIA [None]
